FAERS Safety Report 4844399-0 (Version None)
Quarter: 2005Q4

REPORT INFORMATION
  Report Type: 
  Country: None (occurrence: None)
  Receive Date: 20051202
  Receipt Date: 20051123
  Transmission Date: 20060501
  Serious: Yes (Hospitalization, Other)
  Sender: FDA-Public Use
  Company Number: US-MERCK-0511USA04174

PATIENT
  Age: 80 Year
  Sex: Female
  Weight: 95 kg

DRUGS (6)
  1. VIOXX [Suspect]
     Indication: ARTHRALGIA
     Route: 048
     Dates: start: 20000201, end: 20031201
  2. VIOXX [Suspect]
     Route: 048
     Dates: start: 20000201, end: 20031201
  3. ARICEPT [Concomitant]
     Route: 065
  4. ZOCOR [Concomitant]
     Route: 065
  5. ADVATE [Concomitant]
     Route: 065
  6. VITAMINS (UNSPECIFIED) [Concomitant]
     Route: 065

REACTIONS (5)
  - KIDNEY INFECTION [None]
  - MYOCARDIAL INFARCTION [None]
  - RECTAL HAEMORRHAGE [None]
  - THROMBOSIS [None]
  - ULCER HAEMORRHAGE [None]
